FAERS Safety Report 18270776 (Version 3)
Quarter: 2020Q4

REPORT INFORMATION
  Report Type: Report from Study
  Country: US (occurrence: US)
  Receive Date: 20200915
  Receipt Date: 20201021
  Transmission Date: 20210113
  Serious: Yes (Other)
  Sender: FDA-Public Use
  Company Number: NVSC2020US251553

PATIENT
  Sex: Female

DRUGS (2)
  1. INSULIN [Concomitant]
     Active Substance: INSULIN NOS
     Indication: PRODUCT USED FOR UNKNOWN INDICATION
     Dosage: UNK
     Route: 065
  2. PIQRAY [Suspect]
     Active Substance: ALPELISIB
     Indication: PRODUCT USED FOR UNKNOWN INDICATION
     Dosage: UNK
     Route: 048
     Dates: end: 20200926

REACTIONS (14)
  - Gait disturbance [Unknown]
  - Hyperglycaemia [Unknown]
  - Pollakiuria [Unknown]
  - Eating disorder [Unknown]
  - Decreased appetite [Unknown]
  - Diarrhoea [Unknown]
  - Asthenia [Unknown]
  - Stomatitis [Unknown]
  - Delirium [Unknown]
  - Hallucination [Unknown]
  - Ill-defined disorder [Unknown]
  - Hypersomnia [Unknown]
  - Abdominal discomfort [Unknown]
  - Fatigue [Unknown]
